FAERS Safety Report 6394228-1 (Version None)
Quarter: 2009Q4

REPORT INFORMATION
  Report Type: 
  Country: None (occurrence: None)
  Receive Date: 20091008
  Receipt Date: 20090930
  Transmission Date: 20100525
  Serious: Yes (Other)
  Sender: FDA-Public Use
  Company Number: US-AMGEN-QUU365111

PATIENT
  Sex: Male

DRUGS (5)
  1. ENBREL [Suspect]
     Indication: PSORIASIS
     Route: 058
     Dates: start: 20090601
  2. AMLODIPINE [Concomitant]
  3. LISINOPRIL [Concomitant]
  4. DOXEPIN HCL [Concomitant]
  5. ZOLPIDEM [Concomitant]

REACTIONS (1)
  - SUICIDAL IDEATION [None]
